FAERS Safety Report 4783115-8 (Version None)
Quarter: 2005Q3

REPORT INFORMATION
  Report Type: 
  Country: None (occurrence: None)
  Receive Date: 20050914
  Receipt Date: 20040920
  Transmission Date: 20060218
  Serious: Yes (Death)
  Sender: FDA-Public Use
  Company Number: 163-20785-04030775

PATIENT
  Age: 74 Year
  Sex: Male

DRUGS (1)
  1. THALOMID [Suspect]
     Indication: PROSTATE CANCER STAGE IV
     Dosage: 100 MG, QHS, ORAL
     Route: 048
     Dates: start: 20040115, end: 20040615

REACTIONS (8)
  - ASTHENIA [None]
  - CACHEXIA [None]
  - CONSTIPATION [None]
  - DEATH [None]
  - DISEASE PROGRESSION [None]
  - FATIGUE [None]
  - METASTASES TO BONE [None]
  - OEDEMA PERIPHERAL [None]
